FAERS Safety Report 21799683 (Version 1)
Quarter: 2022Q4

REPORT INFORMATION
  Report Type: Spontaneous
  Country: US (occurrence: None)
  Receive Date: 20221229
  Receipt Date: 20221229
  Transmission Date: 20230113
  Serious: Yes (Death)
  Sender: FDA-Public Use
  Company Number: None

PATIENT
  Sex: Female

DRUGS (7)
  1. ENBREL [Suspect]
     Active Substance: ETANERCEPT
     Indication: Rheumatoid arthritis
     Dosage: FREQUENCY : AS DIRECTED;?
     Route: 058
     Dates: start: 201507, end: 202212
  2. ASPIRIN CHW [Concomitant]
  3. BRILINTA [Concomitant]
     Active Substance: TICAGRELOR
  4. DIGOXIN INJ [Concomitant]
  5. ELIQUIS [Concomitant]
     Active Substance: APIXABAN
  6. LIPITOR [Concomitant]
     Active Substance: ATORVASTATIN CALCIUM
  7. XANAX [Concomitant]
     Active Substance: ALPRAZOLAM

REACTIONS (1)
  - Death [None]
